FAERS Safety Report 17191751 (Version 1)
Quarter: 2019Q4

REPORT INFORMATION
  Report Type: Report from Study
  Country: NL (occurrence: NL)
  Receive Date: 20191223
  Receipt Date: 20191223
  Transmission Date: 20200122
  Serious: Yes (Death)
  Sender: FDA-Public Use
  Company Number: NVSC2019NL076123

PATIENT
  Age: 51 Year
  Sex: Male

DRUGS (2)
  1. ZOMETA [Suspect]
     Active Substance: ZOLEDRONIC ACID
     Dosage: 1 DF, Q3W (4MG/100ML)
     Route: 042
     Dates: start: 20191202
  2. ZOMETA [Suspect]
     Active Substance: ZOLEDRONIC ACID
     Indication: RECTAL CANCER
     Dosage: 1 DF, Q3W (4MG/100ML)
     Route: 042
     Dates: start: 20191111

REACTIONS (3)
  - Death [Fatal]
  - Inappropriate schedule of product administration [Unknown]
  - Product use in unapproved indication [Unknown]

NARRATIVE: CASE EVENT DATE: 20191216
